FAERS Safety Report 8394583 (Version 7)
Quarter: 2016Q3

REPORT INFORMATION
  Report Type: Spontaneous
  Country: JP (occurrence: JP)
  Receive Date: 20120207
  Receipt Date: 20160818
  Transmission Date: 20161109
  Serious: Yes (Hospitalization, Other)
  Sender: FDA-Public Use
  Company Number: JP-GLAXOSMITHKLINE-B0779138A

PATIENT
  Age: 62 Year
  Sex: Male
  Weight: 59 kg

DRUGS (10)
  1. LAMOTRIGINE. [Suspect]
     Active Substance: LAMOTRIGINE
     Indication: BIPOLAR DISORDER
     Route: 048
     Dates: start: 20111227, end: 20120109
  2. LENDORMIN [Concomitant]
     Active Substance: BROTIZOLAM
     Route: 048
  3. SILECE [Concomitant]
     Active Substance: FLUNITRAZEPAM
     Route: 065
  4. LULLAN [Concomitant]
     Active Substance: PEROSPIRONE HYDROCHLORIDE
     Route: 048
  5. LIMAS [Concomitant]
     Active Substance: LITHIUM CARBONATE
     Route: 048
  6. LAMOTRIGINE. [Suspect]
     Active Substance: LAMOTRIGINE
     Route: 048
     Dates: start: 20120110, end: 20120122
  7. ZYLORIC [Concomitant]
     Active Substance: ALLOPURINOL
     Route: 048
  8. PAXIL [Concomitant]
     Active Substance: PAROXETINE HYDROCHLORIDE
     Route: 048
  9. BAYASPIRIN [Concomitant]
     Active Substance: ASPIRIN
     Route: 048
  10. URALYT [Concomitant]
     Active Substance: POTASSIUM CITRATE\TRISODIUM CITRATE DIHYDRATE
     Route: 048

REACTIONS (11)
  - Erythema multiforme [Unknown]
  - Ocular hyperaemia [Unknown]
  - Drug eruption [Recovering/Resolving]
  - Erythema of eyelid [Unknown]
  - Scab [Unknown]
  - Rash maculo-papular [Unknown]
  - Lip erosion [Unknown]
  - Stevens-Johnson syndrome [Recovering/Resolving]
  - Eye discharge [Unknown]
  - Oral mucosa erosion [Unknown]
  - Erythema [Unknown]

NARRATIVE: CASE EVENT DATE: 20120124
